FAERS Safety Report 5837651-3 (Version None)
Quarter: 2008Q3

REPORT INFORMATION
  Report Type: 
  Country: None (occurrence: None)
  Receive Date: 20080807
  Receipt Date: 20080731
  Transmission Date: 20090109
  Serious: Yes (Hospitalization)
  Sender: FDA-Public Use
  Company Number: PHHY2008BR16678

PATIENT
  Sex: Female

DRUGS (3)
  1. EXFORGE [Suspect]
     Indication: HYPERTENSION
     Dosage: 1 TIME (320 MG VAL/5 MG AMLO) PER DAY
     Route: 048
  2. EXFORGE [Suspect]
     Dosage: 1 TIME (160 MG VAL/5 MG AMLO) PER DAY
     Route: 048
  3. SELOZOK [Concomitant]

REACTIONS (2)
  - ENDOSCOPY [None]
  - GASTRITIS [None]
